FAERS Safety Report 8736913 (Version 2)
Quarter: 2012Q4

REPORT INFORMATION
  Report Type: Spontaneous
  Country: US (occurrence: None)
  Receive Date: 20120806
  Receipt Date: 20120822
  Transmission Date: 20130627
  Serious: Yes (Other)
  Sender: FDA-Public Use
  Company Number: PR-AE12-000111

PATIENT
  Age: 56 Year
  Sex: Female

DRUGS (9)
  1. ASPIRIN [Suspect]
     Indication: PRODUCT USED FOR UNKNOWN INDICATION
     Dosage: ORAL
     Route: 048
  2. INTERFERON BETA-1A [Suspect]
     Indication: MULTIPLE SCLEROSIS
     Dosage: 44 MCG-3XWEEK-INJECTION
     Dates: start: 20031017
  3. PROPRANOLOL HYDROCHLORIDE [Suspect]
     Indication: PRODUCT USED FOR UNKNOWN INDICATION
     Dosage: UNK
  4. ATENOLOL [Suspect]
     Indication: PRODUCT USED FOR UNKNOWN INDICATION
     Dosage: UNK
  5. CLOPIDOGREL BISULFATE [Suspect]
     Indication: PRODUCT USED FOR UNKNOWN INDICATION
     Dosage: ORAL
     Route: 048
  6. VALIUM [Concomitant]
  7. BUPROPION HYDROCHLORIDE [Concomitant]
  8. ALPRAZOLAM [Concomitant]
  9. PRINZIDE [Concomitant]

REACTIONS (4)
  - Lacunar infarction [None]
  - Fall [None]
  - Head injury [None]
  - Cerebral ischaemia [None]
